FAERS Safety Report 20449236 (Version 1)
Quarter: 2022Q1

REPORT INFORMATION
  Report Type: Spontaneous
  Country: US (occurrence: None)
  Receive Date: 20220208
  Receipt Date: 20220208
  Transmission Date: 20220423
  Serious: Yes (Death)
  Sender: FDA-Public Use
  Company Number: None

PATIENT
  Sex: Female

DRUGS (17)
  1. CYCLOPHOSPHAMIDE [Suspect]
     Active Substance: CYCLOPHOSPHAMIDE
  2. CALCIUM+MAG TAB [Concomitant]
  3. CEFTIN TAB [Concomitant]
  4. CLARINEX TAB [Concomitant]
  5. CO Q10 CAP [Concomitant]
  6. FISH OIL CAP [Concomitant]
  7. LETROZOLE TAB [Concomitant]
  8. MAGNESIUM TAB [Concomitant]
  9. MELOXICAM [Concomitant]
  10. MIRALAX PW 3350 NF [Concomitant]
  11. SIMVASTATIN [Concomitant]
     Active Substance: SIMVASTATIN
  12. SINGULAR [Concomitant]
  13. VITAMIN B100 TAB COMPLEX [Concomitant]
  14. VITAMIN C [Concomitant]
  15. VITAMIN D PRO [Concomitant]
  16. VITAMIN E [Concomitant]
     Active Substance: .ALPHA.-TOCOPHEROL
  17. XGEVA INJ [Concomitant]

REACTIONS (1)
  - Death [None]
